FAERS Safety Report 17087140 (Version 1)
Quarter: 2019Q4

REPORT INFORMATION
  Report Type: Spontaneous
  Country: US (occurrence: US)
  Receive Date: 20191128
  Receipt Date: 20191128
  Transmission Date: 20200122
  Serious: Yes (Hospitalization)
  Sender: FDA-Public Use
  Company Number: US-GLAND PHARMA LIMITED-2077289

PATIENT
  Sex: Female

DRUGS (2)
  1. CISPLATIN. [Suspect]
     Active Substance: CISPLATIN
     Indication: TRIPLE NEGATIVE BREAST CANCER
     Route: 042
  2. CISPLATIN REGIMEN [Suspect]
     Active Substance: CISPLATIN
     Route: 042

REACTIONS (1)
  - Urinary tract infection [Unknown]
